FAERS Safety Report 5468483-6 (Version None)
Quarter: 2007Q3

REPORT INFORMATION
  Report Type: 
  Country: None (occurrence: None)
  Receive Date: 20070926
  Receipt Date: 20070626
  Transmission Date: 20080115
  Serious: No
  Sender: FDA-Public Use
  Company Number: US-BRISTOL-MYERS SQUIBB COMPANY-13826797

PATIENT
  Sex: Female
  Weight: 99 kg

DRUGS (4)
  1. ORENCIA [Suspect]
     Dates: start: 20070619
  2. SYNTHROID [Concomitant]
  3. ANAPROX [Concomitant]
  4. ARAVA [Concomitant]

REACTIONS (2)
  - BLOOD PRESSURE INCREASED [None]
  - HEADACHE [None]
